FAERS Safety Report 22203016 (Version 2)
Quarter: 2023Q2

REPORT INFORMATION
  Report Type: Spontaneous
  Country: US (occurrence: US)
  Receive Date: 20230412
  Receipt Date: 20230523
  Transmission Date: 20230722
  Serious: No
  Sender: FDA-Public Use
  Company Number: US-PFIZER INC-PV202300063944

PATIENT
  Age: 36 Year
  Sex: Male

DRUGS (1)
  1. RUXIENCE [Suspect]
     Active Substance: RITUXIMAB-PVVR
     Indication: Aplastic anaemia
     Dosage: UNK

REACTIONS (7)
  - Wheezing [Unknown]
  - Rash [Unknown]
  - Erythema [Unknown]
  - Musculoskeletal stiffness [Unknown]
  - Urticaria [Unknown]
  - Nasal congestion [Unknown]
  - Off label use [Unknown]
